FAERS Safety Report 4647482-8 (Version None)
Quarter: 2005Q2

REPORT INFORMATION
  Report Type: 
  Country: None (occurrence: None)
  Receive Date: 20050428
  Receipt Date: 20030318
  Transmission Date: 20051028
  Serious: Yes (Hospitalization)
  Sender: FDA-Public Use
  Company Number: CA-ROCHE-334054

PATIENT
  Age: 44 Year
  Sex: Male

DRUGS (7)
  1. PEG-INTERFERON ALFA 2A (RO 25-8310) [Suspect]
     Route: 058
     Dates: start: 20020419, end: 20021020
  2. RIBAVIRIN [Suspect]
     Route: 048
     Dates: start: 20020419, end: 20021020
  3. GLYBURIDE [Concomitant]
     Dates: start: 19930615
  4. METFORMIN HCL [Concomitant]
     Dates: start: 19930615
  5. ALLOPURINOL [Concomitant]
     Dates: start: 19980615
  6. FUROSEMIDE [Concomitant]
     Dates: start: 19980615
  7. ALDACTONE [Concomitant]
     Dates: start: 19980615

REACTIONS (5)
  - ASCITES [None]
  - BLISTER [None]
  - CELLULITIS [None]
  - FASCIITIS [None]
  - HAEMOGLOBIN DECREASED [None]
